FAERS Safety Report 7150407-7 (Version None)
Quarter: 2010Q4

REPORT INFORMATION
  Report Type: 
  Country: None (occurrence: None)
  Receive Date: 20101210
  Receipt Date: 20101129
  Transmission Date: 20110411
  Serious: Yes (Other)
  Sender: FDA-Public Use
  Company Number: PHHY2010DE81356

PATIENT
  Sex: Female

DRUGS (4)
  1. ESTRADERM [Suspect]
     Indication: HORMONE REPLACEMENT THERAPY
     Dosage: TWICE A WEEK
     Route: 062
  2. AMLODIPINE [Concomitant]
     Indication: HYPERTENSION
     Dosage: HALF A TABLET IN THE MORNING
     Route: 048
  3. SULFASALAZINE [Concomitant]
     Indication: GASTROINTESTINAL DISORDER
     Dosage: 500
  4. METOCLOPRAMID [Concomitant]
     Indication: GASTROINTESTINAL DISORDER
     Dosage: UNK

REACTIONS (3)
  - BLOOD URINE PRESENT [None]
  - CYSTITIS [None]
  - MICTURITION URGENCY [None]
